FAERS Safety Report 25884358 (Version 1)
Quarter: 2025Q4

REPORT INFORMATION
  Report Type: Spontaneous
  Country: US (occurrence: None)
  Receive Date: 20251003
  Receipt Date: 20251003
  Transmission Date: 20260117
  Serious: Yes (Hospitalization)
  Sender: FDA-CTU
  Company Number: None

PATIENT
  Age: 76 Year
  Sex: Female

DRUGS (12)
  1. PRALUENT [Suspect]
     Active Substance: ALIROCUMAB
     Indication: Hyperlipidaemia
     Dosage: 75  MG/ML EVER OTHER WEEK SUBCUTANEOUS
     Route: 058
     Dates: start: 20250327
  2. BRILINTA [Concomitant]
     Active Substance: TICAGRELOR
  3. GLIPIZIDE [Concomitant]
     Active Substance: GLIPIZIDE
  4. METFORMIN [Concomitant]
     Active Substance: METFORMIN HYDROCHLORIDE
  5. PANTOPRAZOLE [Concomitant]
     Active Substance: PANTOPRAZOLE
  6. TIZANIDINE [Concomitant]
     Active Substance: TIZANIDINE
  7. METOPROLOL [Concomitant]
     Active Substance: METOPROLOL
  8. EZETIMIBE [Concomitant]
     Active Substance: EZETIMIBE
  9. IBUPROFEN [Concomitant]
     Active Substance: IBUPROFEN
  10. TYLENOL [Concomitant]
     Active Substance: ACETAMINOPHEN
  11. IRON [Concomitant]
     Active Substance: IRON
  12. NITROGLYCERIN [Concomitant]
     Active Substance: NITROGLYCERIN

REACTIONS (1)
  - Cerebrovascular accident [None]
